FAERS Safety Report 14980506 (Version 7)
Quarter: 2019Q2

REPORT INFORMATION
  Report Type: Spontaneous
  Country: US (occurrence: US)
  Receive Date: 20180606
  Receipt Date: 20190610
  Transmission Date: 20190711
  Serious: Yes (Hospitalization)
  Sender: FDA-Public Use
  Company Number: US-ACTELION-A-US2018-173153

PATIENT
  Age: 84 Year
  Sex: Male

DRUGS (16)
  1. OPSUMIT [Suspect]
     Active Substance: MACITENTAN
     Indication: PULMONARY HYPERTENSION
     Dosage: 10 MG, QD
     Route: 048
     Dates: start: 20180518
  2. SIMVASTATIN. [Concomitant]
     Active Substance: SIMVASTATIN
  3. ELIQUIS [Concomitant]
     Active Substance: APIXABAN
  4. METFORMIN [Concomitant]
     Active Substance: METFORMIN HYDROCHLORIDE
  5. FINASTERIDE. [Concomitant]
     Active Substance: FINASTERIDE
  6. LUMIGAN [Concomitant]
     Active Substance: BIMATOPROST
  7. CARDURA [Concomitant]
     Active Substance: DOXAZOSIN MESYLATE
  8. GLIPIZIDE. [Concomitant]
     Active Substance: GLIPIZIDE
  9. AVALIDE [Concomitant]
     Active Substance: HYDROCHLOROTHIAZIDE\IRBESARTAN
  10. ISOSORBIDE. [Concomitant]
     Active Substance: ISOSORBIDE
  11. ADVAIR HFA [Concomitant]
     Active Substance: FLUTICASONE PROPIONATE\SALMETEROL XINAFOATE
  12. MULTIVITAMIN [Concomitant]
     Active Substance: VITAMINS
  13. DIGOXIN. [Concomitant]
     Active Substance: DIGOXIN
  14. AMLODIPINE [Concomitant]
     Active Substance: AMLODIPINE BESYLATE
  15. ALDACTONE [Concomitant]
     Active Substance: SPIRONOLACTONE
  16. METOPROLOL. [Concomitant]
     Active Substance: METOPROLOL

REACTIONS (13)
  - Hospitalisation [Unknown]
  - Aortic valve disease [Recovered/Resolved]
  - Cardiovascular evaluation [Not Recovered/Not Resolved]
  - Headache [Not Recovered/Not Resolved]
  - Respiratory disorder [Not Recovered/Not Resolved]
  - Productive cough [Not Recovered/Not Resolved]
  - Dyspnoea [Recovered/Resolved]
  - Fatigue [Not Recovered/Not Resolved]
  - Cellulitis [Recovering/Resolving]
  - Tricuspid valve replacement [Not Recovered/Not Resolved]
  - Oropharyngeal pain [Not Recovered/Not Resolved]
  - Pain [Not Recovered/Not Resolved]
  - Erythema [Not Recovered/Not Resolved]

NARRATIVE: CASE EVENT DATE: 20180526
